FAERS Safety Report 11222725 (Version 1)
Quarter: 2015Q2

REPORT INFORMATION
  Report Type: Spontaneous
  Country: US (occurrence: US)
  Receive Date: 20150626
  Receipt Date: 20150626
  Transmission Date: 20150821
  Serious: No
  Sender: FDA-Public Use
  Company Number: US-PFIZER INC-2015210350

PATIENT
  Age: 82 Year
  Sex: Male

DRUGS (4)
  1. RANEXA [Concomitant]
     Active Substance: RANOLAZINE
     Dosage: UNK
  2. ATORVASTATIN [Concomitant]
     Active Substance: ATORVASTATIN
     Dosage: UNK
  3. INSULIN [Concomitant]
     Active Substance: INSULIN NOS
     Dosage: UNK
  4. XELJANZ [Suspect]
     Active Substance: TOFACITINIB CITRATE
     Indication: RHEUMATOID ARTHRITIS
     Dosage: 5 MG, 2X/DAY
     Route: 048
     Dates: start: 201409, end: 201503

REACTIONS (3)
  - Nocturia [Unknown]
  - Nasopharyngitis [Recovered/Resolved]
  - Dyspnoea [Unknown]
